FAERS Safety Report 4524044-4 (Version None)
Quarter: 2005Q1

REPORT INFORMATION
  Report Type: 
  Country: None (occurrence: None)
  Receive Date: 20041119
  Receipt Date: 20040819
  Transmission Date: 20050727
  Serious: No
  Sender: FDA-Public Use
  Company Number: PHEH2004US09012

PATIENT
  Age: 64 Year
  Sex: Female

DRUGS (3)
  1. ZELNORM [Suspect]
     Indication: CONSTIPATION
     Dosage: 6 MG, QD, ORAL
     Route: 048
     Dates: start: 20040812, end: 20040814
  2. ESTROGEN NOS (ESTROGEN NOS) [Concomitant]
  3. SYNTHROID [Concomitant]

REACTIONS (9)
  - ABDOMINAL PAIN [None]
  - BACK PAIN [None]
  - BLADDER DISORDER [None]
  - BLOOD URINE [None]
  - CYSTITIS [None]
  - DIARRHOEA [None]
  - NAUSEA [None]
  - PYREXIA [None]
  - PYURIA [None]
